FAERS Safety Report 12896771 (Version 1)
Quarter: 2016Q4

REPORT INFORMATION
  Report Type: Spontaneous
  Country: BR (occurrence: BR)
  Receive Date: 20161031
  Receipt Date: 20161031
  Transmission Date: 20170207
  Serious: Yes (Hospitalization, Other)
  Sender: FDA-Public Use
  Company Number: PHHY2016BR146497

PATIENT
  Sex: Female
  Weight: 70 kg

DRUGS (1)
  1. FORASEQ [Suspect]
     Active Substance: BUDESONIDE\FORMOTEROL FUMARATE
     Indication: PNEUMONIA
     Dosage: (60+60)USE ONLY WHEN IN CRISIS
     Route: 055

REACTIONS (15)
  - Infarction [Not Recovered/Not Resolved]
  - Respiratory distress [Unknown]
  - Pneumonia [Recovered/Resolved]
  - Visual impairment [Not Recovered/Not Resolved]
  - Fall [Recovered/Resolved]
  - Dyspnoea [Unknown]
  - Respiratory arrest [Unknown]
  - Decreased appetite [Not Recovered/Not Resolved]
  - Depression [Not Recovered/Not Resolved]
  - Product use issue [Unknown]
  - Paralysis [Recovered/Resolved]
  - Asthma [Not Recovered/Not Resolved]
  - Bronchitis [Not Recovered/Not Resolved]
  - Influenza [Not Recovered/Not Resolved]
  - Insomnia [Not Recovered/Not Resolved]

NARRATIVE: CASE EVENT DATE: 2014
